FAERS Safety Report 10344444 (Version 2)
Quarter: 2014Q3

REPORT INFORMATION
  Report Type: Spontaneous
  Country: US (occurrence: US)
  Receive Date: 20140728
  Receipt Date: 20140929
  Transmission Date: 20150326
  Serious: No
  Sender: FDA-Public Use
  Company Number: US-009507513-1407USA010268

PATIENT
  Sex: Female

DRUGS (1)
  1. RAGWITEK [Suspect]
     Active Substance: AMBROSIA ARTEMISIIFOLIA POLLEN
     Indication: SEASONAL ALLERGY
     Dosage: UNK, QD
     Route: 060

REACTIONS (1)
  - Throat irritation [Recovered/Resolved]
